FAERS Safety Report 15806250 (Version 2)
Quarter: 2019Q2

REPORT INFORMATION
  Report Type: Spontaneous
  Country: US (occurrence: US)
  Receive Date: 20190110
  Receipt Date: 20190403
  Transmission Date: 20190711
  Serious: No
  Sender: FDA-Public Use
  Company Number: US-PFIZER INC-2019008188

PATIENT
  Age: 65 Year
  Sex: Male
  Weight: 102.4 kg

DRUGS (3)
  1. DIAZEPAM. [Suspect]
     Active Substance: DIAZEPAM
     Dosage: UNK
  2. OXYCODONE [Suspect]
     Active Substance: OXYCODONE
     Dosage: 30 MG, 4X/DAY
  3. OXYCODONE [Suspect]
     Active Substance: OXYCODONE
     Dosage: 30 MG, 3X/DAY

REACTIONS (1)
  - Drug ineffective [Unknown]
